FAERS Safety Report 20819330 (Version 1)
Quarter: 2022Q2

REPORT INFORMATION
  Report Type: Spontaneous
  Country: US (occurrence: None)
  Receive Date: 20220511
  Receipt Date: 20220511
  Transmission Date: 20220720
  Serious: Yes (Other)
  Sender: FDA-Public Use
  Company Number: None

PATIENT
  Age: 51 Year
  Sex: Male

DRUGS (1)
  1. INLYTA [Suspect]
     Active Substance: AXITINIB
     Indication: Nasopharyngeal cancer
     Dosage: FREQUENCY : TWICE A DAY;?
     Route: 048
     Dates: start: 20220419

REACTIONS (4)
  - Headache [None]
  - Oropharyngeal pain [None]
  - Skin exfoliation [None]
  - Epistaxis [None]

NARRATIVE: CASE EVENT DATE: 20220511
